FAERS Safety Report 6995947-6 (Version None)
Quarter: 2010Q3

REPORT INFORMATION
  Report Type: 
  Country: None (occurrence: None)
  Receive Date: 20100918
  Receipt Date: 20081201
  Transmission Date: 20110219
  Serious: No
  Sender: FDA-Public Use
  Company Number: US-WYE-H07044008

PATIENT
  Sex: Female
  Weight: 74.91 kg

DRUGS (4)
  1. EFFEXOR XR [Suspect]
     Indication: DEPRESSION
     Route: 048
     Dates: start: 19920101, end: 20081001
  2. EFFEXOR XR [Suspect]
     Route: 048
     Dates: start: 20081001
  3. RELPAX [Concomitant]
  4. VIVELLE [Concomitant]

REACTIONS (3)
  - ABDOMINAL PAIN [None]
  - MEDICATION RESIDUE [None]
  - NAUSEA [None]
